FAERS Safety Report 17021144 (Version 1)
Quarter: 2019Q4

REPORT INFORMATION
  Report Type: Spontaneous
  Country: US (occurrence: US)
  Receive Date: 20191007
  Receipt Date: 20191007
  Transmission Date: 20200122
  Serious: Yes (Hospitalization)
  Sender: FDA-Public Use
  Company Number: None

PATIENT
  Age: 10 Year
  Sex: Male

DRUGS (18)
  1. HUMATROPE [Suspect]
     Active Substance: SOMATROPIN
     Indication: HYPOPITUITARISM
     Dosage: ?          OTHER FREQUENCY:6 TIMES/ WEEK;?
     Route: 058
     Dates: start: 20190731
  2. MULTIVITAMIN [Concomitant]
     Active Substance: VITAMINS
  3. CYSTARAN [Concomitant]
     Active Substance: CYSTEAMINE HYDROCHLORIDE
  4. K-TAB [Concomitant]
     Active Substance: POTASSIUM CHLORIDE
  5. LOSARTAN POT [Concomitant]
     Active Substance: LOSARTAN POTASSIUM
  6. MAGNESIUM [Concomitant]
     Active Substance: MAGNESIUM
  7. SOD CHLORIDE NEB [Concomitant]
  8. ENALAPRIL [Concomitant]
     Active Substance: ENALAPRIL
  9. KLOR-CON M10 [Concomitant]
     Active Substance: POTASSIUM CHLORIDE
  10. PHOSPHA 250 [Concomitant]
  11. RENA-VITE [Concomitant]
     Active Substance: ASCORBIC ACID\BIOTIN\CALCIUM PANTOTHENATE\CYANOCOBALAMIN\FOLIC ACID\NIACINAMIDE\PYRIDOXINE HYDROCHLORIDE\RIBOFLAVIN\THIAMINE MONONITRATE
  12. VITAMIN D3 [Concomitant]
     Active Substance: CHOLECALCIFEROL
  13. PROCYSBI [Concomitant]
     Active Substance: CYSTEAMINE BITARTRATE
  14. LEVOCARINITIN [Concomitant]
  15. SOD BICAR [Concomitant]
  16. GAMASTAN [Concomitant]
     Active Substance: HUMAN IMMUNOGLOBULIN G
  17. TOPAMAX [Concomitant]
     Active Substance: TOPIRAMATE
  18. UROCIT K 5 [Concomitant]

REACTIONS (1)
  - Hospitalisation [None]
